FAERS Safety Report 8538021-X (Version None)
Quarter: 2012Q3

REPORT INFORMATION
  Report Type: 
  Country: None (occurrence: None)
  Receive Date: 20120725
  Receipt Date: 20120716
  Transmission Date: 20120928
  Serious: Yes (Life-Threatening, Hospitalization, Congenital Anomaly, Other)
  Sender: FDA-Public Use
  Company Number: DE-TEVA-349278GER

PATIENT
  Sex: Male

DRUGS (3)
  1. FOLSAURE [Concomitant]
     Route: 064
  2. CITALOPRAM HYDROBROMIDE [Suspect]
     Route: 064
  3. VENLAFAXINE [Suspect]
     Route: 064

REACTIONS (4)
  - BRADYCARDIA NEONATAL [None]
  - HAEMANGIOMA CONGENITAL [None]
  - NEONATAL RESPIRATORY DISTRESS SYNDROME [None]
  - LONG QT SYNDROME [None]
